FAERS Safety Report 10519030 (Version 1)
Quarter: 2014Q4

REPORT INFORMATION
  Report Type: Spontaneous
  Country: US (occurrence: None)
  Receive Date: 20141014
  Receipt Date: 20141014
  Transmission Date: 20150528
  Serious: No
  Sender: FDA-Public Use
  Company Number: None

PATIENT
  Age: 58 Year
  Sex: Female
  Weight: 74.84 kg

DRUGS (1)
  1. MACROBID [Suspect]
     Active Substance: NITROFURANTOIN\NITROFURANTOIN MONOHYDRATE
     Indication: URINARY TRACT INFECTION ENTEROCOCCAL
     Route: 048
     Dates: start: 20140927, end: 20141006

REACTIONS (6)
  - Urinary tract infection enterococcal [None]
  - Pruritus [None]
  - Eye pain [None]
  - Neuropathy peripheral [None]
  - Diarrhoea [None]
  - Middle insomnia [None]

NARRATIVE: CASE EVENT DATE: 20141006
